FAERS Safety Report 13001442 (Version 1)
Quarter: 2016Q4

REPORT INFORMATION
  Report Type: Spontaneous
  Country: SI (occurrence: SI)
  Receive Date: 20161206
  Receipt Date: 20161206
  Transmission Date: 20170207
  Serious: Yes (Other)
  Sender: FDA-Public Use
  Company Number: SI-BAYER-2016-226355

PATIENT
  Age: 73 Year
  Sex: Male

DRUGS (7)
  1. CALCIUM CARBONATE. [Concomitant]
     Active Substance: CALCIUM CARBONATE
  2. VITAMIN D [Concomitant]
     Active Substance: CHOLECALCIFEROL
  3. DUROGESIC [Concomitant]
     Active Substance: FENTANYL
  4. ELIGARD [Concomitant]
     Active Substance: LEUPROLIDE ACETATE
  5. XOFIGO [Suspect]
     Active Substance: RADIUM RA-223 DICHLORIDE
     Indication: PROSTATE CANCER METASTATIC
     Dosage: UNK
     Dates: start: 2015, end: 201512
  6. ZOMETA [Concomitant]
     Active Substance: ZOLEDRONIC ACID
  7. ZALDIAR [Concomitant]
     Active Substance: ACETAMINOPHEN\TRAMADOL HYDROCHLORIDE

REACTIONS (2)
  - Metastases to bone [None]
  - Paraparesis [None]

NARRATIVE: CASE EVENT DATE: 201602
